FAERS Safety Report 18581166 (Version 3)
Quarter: 2021Q1

REPORT INFORMATION
  Report Type: Spontaneous
  Country: CH (occurrence: CH)
  Receive Date: 20201204
  Receipt Date: 20210310
  Transmission Date: 20210419
  Serious: Yes (Hospitalization, Other)
  Sender: FDA-Public Use
  Company Number: CH-BRISTOL-MYERS SQUIBB COMPANY-BMS-2020-101140

PATIENT
  Age: 61 Year
  Sex: Female

DRUGS (2)
  1. YERVOY [Suspect]
     Active Substance: IPILIMUMAB
     Indication: RENAL CELL CARCINOMA
     Dosage: UNK
     Route: 065
     Dates: start: 20190808
  2. OPDIVO [Suspect]
     Active Substance: NIVOLUMAB
     Indication: RENAL CELL CARCINOMA
     Dosage: UNK
     Route: 065
     Dates: start: 20190808

REACTIONS (7)
  - Lymphocytic hypophysitis [Unknown]
  - General physical health deterioration [Unknown]
  - Vomiting [Unknown]
  - Pyrexia [Unknown]
  - Hypercalcaemia [Unknown]
  - Nausea [Unknown]
  - Metastases to bone [Unknown]

NARRATIVE: CASE EVENT DATE: 201912
